FAERS Safety Report 6527110-7 (Version None)
Quarter: 2010Q1

REPORT INFORMATION
  Report Type: 
  Country: None (occurrence: None)
  Receive Date: 20100105
  Receipt Date: 20091223
  Transmission Date: 20100710
  Serious: Yes (Hospitalization)
  Sender: FDA-Public Use
  Company Number: US-CELGENEUS-163-21880-09122013

PATIENT
  Sex: Female

DRUGS (5)
  1. REVLIMID [Suspect]
     Indication: MULTIPLE MYELOMA
     Route: 048
     Dates: start: 20090930, end: 20091001
  2. REVLIMID [Suspect]
     Route: 048
     Dates: start: 20091029
  3. REVLIMID [Suspect]
     Route: 048
     Dates: start: 20090113, end: 20090716
  4. REVLIMID [Suspect]
     Route: 048
     Dates: start: 20080213
  5. DEXAMETHASONE [Concomitant]
     Indication: DRUG USE FOR UNKNOWN INDICATION
     Route: 065

REACTIONS (1)
  - DIARRHOEA HAEMORRHAGIC [None]
